FAERS Safety Report 16597530 (Version 1)
Quarter: 2019Q3

REPORT INFORMATION
  Report Type: Spontaneous
  Country: US (occurrence: US)
  Receive Date: 20190618
  Receipt Date: 20190618
  Transmission Date: 20191004
  Serious: No
  Sender: FDA-Public Use
  Company Number: None

PATIENT
  Age: 73 Year
  Sex: Male
  Weight: 78.47 kg

DRUGS (1)
  1. PROTAMINE SULFATE. [Suspect]
     Active Substance: PROTAMINE SULFATE
     Indication: VASCULAR OPERATION
     Route: 042
     Dates: start: 20190401, end: 20190401

REACTIONS (3)
  - Bradycardia [None]
  - Oxygen saturation decreased [None]
  - Anaphylactoid reaction [None]

NARRATIVE: CASE EVENT DATE: 20190401
